FAERS Safety Report 11634636 (Version 1)
Quarter: 2015Q4

REPORT INFORMATION
  Report Type: Report from Study
  Country: US (occurrence: US)
  Receive Date: 20151015
  Receipt Date: 20151015
  Transmission Date: 20160304
  Serious: Yes (Hospitalization)
  Sender: FDA-Public Use
  Company Number: GXBR2015US002290

PATIENT
  Age: 78 Year
  Sex: Female
  Weight: 92 kg

DRUGS (11)
  1. HYDRALAZINE HCL TABLETS USP [Suspect]
     Active Substance: HYDRALAZINE HYDROCHLORIDE
     Indication: HYPERTENSION
     Dosage: 25 MG, BID
     Route: 048
     Dates: start: 20150428, end: 20150503
  2. SPIRONOLACTONE. [Suspect]
     Active Substance: SPIRONOLACTONE
     Indication: HYPERTENSION
     Dosage: 25 MG, QD
     Route: 048
     Dates: start: 20140426, end: 20150503
  3. ALLOPURINOL. [Concomitant]
     Active Substance: ALLOPURINOL
     Indication: GOUT
     Dosage: 100 MG, QD
     Route: 048
     Dates: start: 20141009
  4. TAFAMIDIS MEGLUMINE [Suspect]
     Active Substance: TAFAMIDIS MEGLUMINE
     Indication: CARDIAC AMYLOIDOSIS
     Dosage: 20 OR 80 MG
     Route: 065
     Dates: start: 20150126
  5. SPIRONOLACTONE. [Suspect]
     Active Substance: SPIRONOLACTONE
     Dosage: 25 UNK, UNK
     Dates: start: 20150505
  6. MAGNESIUM [Concomitant]
     Active Substance: MAGNESIUM
     Indication: CONSTIPATION
     Dosage: 500 MG, QD
     Route: 048
     Dates: start: 20141221
  7. MOMETASONE [Concomitant]
     Active Substance: MOMETASONE
     Indication: PRURITUS
     Dosage: UNK DF, PRN
     Route: 061
     Dates: start: 20141004
  8. WARFARIN [Concomitant]
     Active Substance: WARFARIN
     Indication: ANTICOAGULANT THERAPY
     Dosage: 5 MG, QD
     Route: 048
     Dates: start: 20140428
  9. METOLAZONE. [Concomitant]
     Active Substance: METOLAZONE
     Indication: DIVERTICULITIS
     Dosage: 5 MG, UNK
     Route: 048
     Dates: start: 20140428
  10. TORSEMIDE. [Concomitant]
     Active Substance: TORSEMIDE
     Indication: DIVERTICULITIS
     Dosage: 150 MG, 100 MG QAM 50 MG QPM
     Route: 065
     Dates: start: 20150428
  11. PLACEBO [Concomitant]
     Active Substance: UNSPECIFIED INGREDIENT
     Indication: CARDIAC AMYLOIDOSIS
     Dosage: UNK DF, UNK
     Route: 065
     Dates: start: 20150126

REACTIONS (1)
  - Mental status changes [Recovered/Resolved]
